FAERS Safety Report 22136227 (Version 1)
Quarter: 2023Q1

REPORT INFORMATION
  Report Type: Spontaneous
  Country: US (occurrence: None)
  Receive Date: 20230324
  Receipt Date: 20230324
  Transmission Date: 20230418
  Serious: Yes (Death)
  Sender: FDA-Public Use
  Company Number: 2023A069927

PATIENT
  Sex: Female

DRUGS (2)
  1. DURVALUMAB [Suspect]
     Active Substance: DURVALUMAB
     Indication: Hepatocellular carcinoma
     Route: 042
  2. TREMELIMUMAB [Concomitant]
     Active Substance: TREMELIMUMAB
     Indication: Hepatocellular carcinoma
     Route: 042

REACTIONS (4)
  - Myasthenia gravis [Fatal]
  - Myocarditis [Fatal]
  - Myositis [Fatal]
  - Overlap syndrome [Fatal]
